FAERS Safety Report 7417880-8 (Version None)
Quarter: 2011Q2

REPORT INFORMATION
  Report Type: 
  Country: None (occurrence: None)
  Receive Date: 20110415
  Receipt Date: 20110407
  Transmission Date: 20111010
  Serious: Yes (Hospitalization)
  Sender: FDA-Public Use
  Company Number: US-JNJFOC-20110404248

PATIENT
  Age: 31 Year
  Sex: Male

DRUGS (2)
  1. PARACETAMOL [Suspect]
     Indication: LIMB INJURY
     Route: 048
  2. PARACETAMOL [Suspect]
     Route: 048

REACTIONS (1)
  - TOXIC EPIDERMAL NECROLYSIS [None]
